FAERS Safety Report 15902612 (Version 1)
Quarter: 2019Q1

REPORT INFORMATION
  Report Type: Spontaneous
  Country: CN (occurrence: CN)
  Receive Date: 20190201
  Receipt Date: 20190201
  Transmission Date: 20190417
  Serious: Yes (Other)
  Sender: FDA-Public Use
  Company Number: CN-ROCHE-2256458

PATIENT
  Age: 69 Year
  Sex: Female
  Weight: 48 kg

DRUGS (2)
  1. MABTHERA [Suspect]
     Active Substance: RITUXIMAB
     Indication: THERAPEUTIC PROCEDURE
     Route: 041
     Dates: start: 20181212, end: 20181212
  2. DEXAMETHASONE SODIUM PHOSPHATE. [Concomitant]
     Active Substance: DEXAMETHASONE SODIUM PHOSPHATE
     Indication: PROPHYLAXIS
     Route: 041
     Dates: start: 20181212, end: 20181212

REACTIONS (3)
  - Asphyxia [Recovering/Resolving]
  - Wheezing [Recovering/Resolving]
  - Chest discomfort [Recovering/Resolving]

NARRATIVE: CASE EVENT DATE: 20181212
